FAERS Safety Report 12467146 (Version 1)
Quarter: 2016Q2

REPORT INFORMATION
  Report Type: Spontaneous
  Country: US (occurrence: US)
  Receive Date: 20160615
  Receipt Date: 20160615
  Transmission Date: 20160815
  Serious: Yes (Other)
  Sender: FDA-Public Use
  Company Number: US-SA-2016SA108506

PATIENT
  Age: 76 Year
  Sex: Female

DRUGS (5)
  1. TOUJEO [Suspect]
     Active Substance: INSULIN GLARGINE
     Indication: TYPE 2 DIABETES MELLITUS
     Dosage: DOSE:50 UNIT(S)
     Route: 065
     Dates: start: 20160528
  2. LANTUS SOLOSTAR [Concomitant]
     Active Substance: INSULIN GLARGINE
     Dates: end: 20160528
  3. SOLOSTAR [Concomitant]
     Active Substance: DEVICE
     Dates: end: 20160528
  4. DIGOXIN. [Concomitant]
     Active Substance: DIGOXIN
  5. SOLOSTAR [Concomitant]
     Active Substance: DEVICE
     Dates: start: 20160528

REACTIONS (1)
  - Hypertension [Unknown]

NARRATIVE: CASE EVENT DATE: 20160606
